FAERS Safety Report 15642121 (Version 1)
Quarter: 2018Q4

REPORT INFORMATION
  Report Type: Spontaneous
  Country: US (occurrence: US)
  Receive Date: 20181121
  Receipt Date: 20181121
  Transmission Date: 20190205
  Serious: No
  Sender: FDA-Public Use
  Company Number: US-JNJFOC-20181046181

PATIENT
  Age: 69 Year
  Sex: Male
  Weight: 71.22 kg

DRUGS (8)
  1. VITAMIN D [Concomitant]
     Active Substance: CHOLECALCIFEROL
     Indication: BLOOD CHOLESTEROL
     Route: 065
  2. SERTRALINE [Concomitant]
     Active Substance: SERTRALINE HYDROCHLORIDE
     Route: 065
  3. NIFEDIPINE. [Concomitant]
     Active Substance: NIFEDIPINE
     Route: 065
  4. HYDROCODONE [Concomitant]
     Active Substance: HYDROCODONE
     Route: 065
  5. PREDNISONE. [Concomitant]
     Active Substance: PREDNISONE
     Route: 065
  6. ZYTIGA [Suspect]
     Active Substance: ABIRATERONE ACETATE
     Indication: PROSTATE CANCER
     Route: 048
     Dates: start: 201807
  7. MORPHINE [Concomitant]
     Active Substance: MORPHINE
     Route: 065
  8. IBUPROFEN. [Concomitant]
     Active Substance: IBUPROFEN
     Route: 065

REACTIONS (8)
  - Skin discolouration [Not Recovered/Not Resolved]
  - Arthralgia [Unknown]
  - Memory impairment [Unknown]
  - Skin exfoliation [Not Recovered/Not Resolved]
  - Fatigue [Unknown]
  - Tooth disorder [Recovered/Resolved]
  - Abnormal loss of weight [Unknown]
  - Pain in extremity [Unknown]

NARRATIVE: CASE EVENT DATE: 201809
